FAERS Safety Report 4554226-7 (Version None)
Quarter: 2004Q4

REPORT INFORMATION
  Report Type: 
  Country: None (occurrence: None)
  Receive Date: 20041227
  Receipt Date: 20041123
  Transmission Date: 20050328
  Serious: Yes (Hospitalization)
  Sender: FDA-Public Use
  Company Number: 04P-163-0281261-00

PATIENT
  Age: 66 Year
  Sex: Female
  Weight: 59.8748 kg

DRUGS (7)
  1. HUMIRA [Suspect]
     Indication: RHEUMATOID ARTHRITIS
     Dosage: 40 MG, 1 IN 1 WK, SUBCUTANEOUS
     Route: 058
     Dates: start: 20020101, end: 20041114
  2. CELECOXIB [Concomitant]
  3. GABAPENTIN [Concomitant]
  4. ESTROGENS CONJUGATED [Concomitant]
  5. LEVOTHYROXINE SODIUM [Concomitant]
  6. OMEPRAZOLE [Concomitant]
  7. FEXOFENADINE HYDROCHLORIDE [Concomitant]

REACTIONS (1)
  - KIDNEY INFECTION [None]
